FAERS Safety Report 12581943 (Version 3)
Quarter: 2016Q3

REPORT INFORMATION
  Report Type: Spontaneous
  Country: US (occurrence: US)
  Receive Date: 20160722
  Receipt Date: 20160808
  Transmission Date: 20161109
  Serious: Yes (Other)
  Sender: FDA-Public Use
  Company Number: US-HORIZON-BUP-0082-2016

PATIENT
  Age: 10 Year
  Sex: Female

DRUGS (4)
  1. METRONIDAZOLE. [Concomitant]
     Active Substance: METRONIDAZOLE
  2. LACTULOSE. [Concomitant]
     Active Substance: LACTULOSE
  3. NEOMYCIN [Concomitant]
     Active Substance: NEOMYCIN
  4. BUPHENYL [Suspect]
     Active Substance: SODIUM PHENYLBUTYRATE
     Indication: UREA CYCLE ENZYME DEFICIENCY
     Dosage: 5 TABLETS 4 TIMES DAILY

REACTIONS (2)
  - Hyperammonaemia [Recovered/Resolved]
  - Respiratory tract infection [Recovered/Resolved]
